FAERS Safety Report 4774473-9 (Version None)
Quarter: 2005Q3

REPORT INFORMATION
  Report Type: 
  Country: None (occurrence: None)
  Receive Date: 20050914
  Receipt Date: 20041110
  Transmission Date: 20060218
  Serious: Yes (Hospitalization)
  Sender: FDA-Public Use
  Company Number: 163-20785-04110251

PATIENT
  Age: 53 Year
  Sex: Male

DRUGS (7)
  1. THALOMID [Suspect]
     Indication: WALDENSTROM'S MACROGLOBULINAEMIA
     Dosage: 200 MG, QHS, ORAL
     Route: 048
     Dates: start: 20040622, end: 20040624
  2. DEXAMETHASONE [Suspect]
     Indication: WALDENSTROM'S MACROGLOBULINAEMIA
  3. CISPLATIN [Suspect]
     Indication: WALDENSTROM'S MACROGLOBULINAEMIA
  4. ADRIAMYCIN PFS [Suspect]
     Indication: WALDENSTROM'S MACROGLOBULINAEMIA
  5. CYCLOPHOSPHAMIDE [Suspect]
     Indication: WALDENSTROM'S MACROGLOBULINAEMIA
  6. ETOPOSIDE [Suspect]
     Indication: WALDENSTROM'S MACROGLOBULINAEMIA
  7. LORAZEPAM [Concomitant]

REACTIONS (1)
  - PNEUMONIA [None]
